FAERS Safety Report 7410903-1 (Version None)
Quarter: 2011Q2

REPORT INFORMATION
  Report Type: 
  Country: None (occurrence: None)
  Receive Date: 20110405
  Receipt Date: 20110317
  Transmission Date: 20111010
  Serious: Yes (Death)
  Sender: FDA-Public Use
  Company Number: 2011P1005341

PATIENT
  Age: 45 Year
  Sex: Male

DRUGS (3)
  1. CARISOPROLOL (NO PREF. NAME) [Suspect]
     Dosage: PO; PARN
     Route: 051
  2. ALPRAZOLAM [Suspect]
     Dosage: PO; PARN
     Route: 051
  3. METHAMPHETAMINE HYDROCHLORIDE [Suspect]
     Dosage: PO; PARN
     Route: 051

REACTIONS (4)
  - DRUG ABUSE [None]
  - INCORRECT ROUTE OF DRUG ADMINISTRATION [None]
  - CARDIAC ARREST [None]
  - RESPIRATORY ARREST [None]
